FAERS Safety Report 9098299 (Version 2)
Quarter: 2013Q1

REPORT INFORMATION
  Report Type: Report from Study
  Country: GR (occurrence: GR)
  Receive Date: 20130213
  Receipt Date: 20130301
  Transmission Date: 20140127
  Serious: Yes (Hospitalization)
  Sender: FDA-Public Use
  Company Number: GR-PFIZER INC-2013044072

PATIENT
  Age: 67 Year
  Sex: Female
  Weight: 59.1 kg

DRUGS (5)
  1. TOFACITINIB CITRATE [Suspect]
     Indication: RHEUMATOID ARTHRITIS
     Dosage: 5 MG, 2X/DAY
     Route: 048
     Dates: start: 20080701, end: 20130118
  2. ALPRAZOLAM [Concomitant]
     Dosage: UNK
     Route: 048
     Dates: start: 20110613
  3. IBANDRONIC ACID [Concomitant]
     Dosage: UNK
     Route: 048
     Dates: start: 2007
  4. CALCIUM CARBONATE [Concomitant]
     Dosage: UNK
     Route: 048
     Dates: start: 2007
  5. TELMISARTAN [Concomitant]
     Dosage: UNK
     Route: 048
     Dates: start: 20110613

REACTIONS (3)
  - Melaena [Recovered/Resolved]
  - Asthenia [Recovered/Resolved]
  - Dizziness [Recovered/Resolved]
